FAERS Safety Report 9822694 (Version 2)
Quarter: 2014Q1

REPORT INFORMATION
  Report Type: Report from Study
  Country: CA (occurrence: CA)
  Receive Date: 20140116
  Receipt Date: 20140116
  Transmission Date: 20141002
  Serious: Yes (Hospitalization)
  Sender: FDA-Public Use
  Company Number: CA-ROCHE-1181095

PATIENT
  Age: 72 Year
  Sex: Female
  Weight: 74 kg

DRUGS (10)
  1. AVASTIN [Suspect]
     Indication: GLIOBLASTOMA
     Route: 042
     Dates: start: 20120828
  2. AVASTIN [Suspect]
     Route: 042
     Dates: start: 20121022
  3. AVASTIN [Suspect]
     Route: 042
     Dates: start: 20121106
  4. AVASTIN [Suspect]
     Route: 042
     Dates: start: 20130220
  5. AVASTIN [Suspect]
     Route: 042
     Dates: start: 20131224, end: 20131224
  6. DEXAMETHASONE [Concomitant]
  7. DILANTIN [Concomitant]
  8. IRBESARTAN [Concomitant]
  9. PANTOLOC [Concomitant]
  10. CITALOPRAM HYDROBROMIDE [Concomitant]

REACTIONS (9)
  - Palliative care [Not Recovered/Not Resolved]
  - Constipation [Recovered/Resolved]
  - Pain in extremity [Not Recovered/Not Resolved]
  - Local swelling [Not Recovered/Not Resolved]
  - Joint swelling [Not Recovered/Not Resolved]
  - Hypoaesthesia [Unknown]
  - Asthenia [Not Recovered/Not Resolved]
  - Hypersomnia [Not Recovered/Not Resolved]
  - Motor dysfunction [Not Recovered/Not Resolved]
